FAERS Safety Report 17203607 (Version 3)
Quarter: 2020Q3

REPORT INFORMATION
  Report Type: Report from Study
  Country: SG (occurrence: SG)
  Receive Date: 20191226
  Receipt Date: 20200406
  Transmission Date: 20201104
  Serious: Yes (Hospitalization)
  Sender: FDA-Public Use
  Company Number: NVSC2019SG075815

PATIENT
  Age: 58 Year
  Sex: Female
  Weight: 49.9 kg

DRUGS (25)
  1. SODIUM CHLORIDE. [Concomitant]
     Active Substance: SODIUM CHLORIDE
     Indication: DECREASED APPETITE
     Dosage: UNK
     Route: 065
     Dates: start: 20191218, end: 20191219
  2. ISOPHANE INSULIN [Concomitant]
     Active Substance: INSULIN NOS
     Indication: DIABETES MELLITUS
     Dosage: 4 U
     Route: 065
     Dates: start: 20010101
  3. CANAKINUMAB. [Suspect]
     Active Substance: CANAKINUMAB
     Indication: TRIPLE NEGATIVE BREAST CANCER
     Dosage: 600 MG, Q2MO
     Route: 058
     Dates: start: 20191202
  4. LAG525 [Suspect]
     Active Substance: IERAMILIMAB
     Indication: TRIPLE NEGATIVE BREAST CANCER
     Dosage: 600 MG, Q4W
     Route: 042
     Dates: start: 20191202
  5. PARACETAMOL [Concomitant]
     Active Substance: ACETAMINOPHEN
     Indication: PYREXIA
  6. PARACETAMOL [Concomitant]
     Active Substance: ACETAMINOPHEN
     Indication: HIP FRACTURE
  7. METFORMIN [Concomitant]
     Active Substance: METFORMIN HYDROCHLORIDE
     Indication: DIABETES MELLITUS
     Dosage: 1 G
     Route: 065
     Dates: start: 20010101
  8. GLICLAZIDA [Concomitant]
     Active Substance: GLICLAZIDE
     Indication: DIABETES MELLITUS
     Dosage: UNK
     Route: 065
     Dates: start: 20010101, end: 20200201
  9. ACTRAPID [Concomitant]
     Active Substance: INSULIN HUMAN
     Indication: DIABETES MELLITUS
     Dosage: 5 U
     Route: 065
     Dates: start: 20191209, end: 20191209
  10. MAGNESIUM SULFATE. [Concomitant]
     Active Substance: MAGNESIUM SULFATE
     Indication: HYPOMAGNESAEMIA
     Dosage: 49.3 %
     Route: 065
     Dates: start: 20191209, end: 20191209
  11. PDR001 [Suspect]
     Active Substance: SPARTALIZUMAB
     Indication: TRIPLE NEGATIVE BREAST CANCER
     Dosage: 400 MG, Q4W
     Route: 042
     Dates: start: 20191202
  12. DEXTROSE. [Concomitant]
     Active Substance: DEXTROSE
     Indication: HYPOGLYCAEMIA
     Dosage: 40 ML
     Route: 065
     Dates: start: 20191209, end: 20191209
  13. ATORVASTATIN [Concomitant]
     Active Substance: ATORVASTATIN
     Indication: HYPERLIPIDAEMIA
     Dosage: UNK
     Route: 065
     Dates: start: 20160101
  14. METOCLOPRAMIDE HCL [Concomitant]
     Active Substance: METOCLOPRAMIDE HYDROCHLORIDE
     Indication: VOMITING
  15. SODIUM CHLORIDE. [Concomitant]
     Active Substance: SODIUM CHLORIDE
     Indication: HYPERKALAEMIA
     Dosage: 0.9 %
     Route: 065
     Dates: start: 20191209, end: 20191210
  16. KETOPROFEN. [Concomitant]
     Active Substance: KETOPROFEN
     Indication: BACK PAIN
     Dosage: 30 MG
     Route: 065
     Dates: start: 20191219, end: 20191219
  17. METOCLOPRAMIDE HCL [Concomitant]
     Active Substance: METOCLOPRAMIDE HYDROCHLORIDE
     Indication: NAUSEA
     Dosage: 10 MG
     Route: 065
     Dates: start: 20191003
  18. PARACETAMOL [Concomitant]
     Active Substance: ACETAMINOPHEN
     Indication: PAIN
     Dosage: UNK
     Route: 065
     Dates: start: 20190906
  19. MAGNESIUM SULFATE. [Concomitant]
     Active Substance: MAGNESIUM SULFATE
     Indication: DECREASED APPETITE
     Dosage: UNK
     Route: 065
     Dates: start: 20191218, end: 20191219
  20. OMEPRAZOLE. [Concomitant]
     Active Substance: OMEPRAZOLE
     Indication: PROPHYLAXIS
     Dosage: UNK
     Route: 065
     Dates: start: 20191218, end: 20191218
  21. TRAMADOL. [Concomitant]
     Active Substance: TRAMADOL
     Indication: PAIN
     Dosage: 50 MG
     Route: 065
     Dates: start: 20191128
  22. RESONIUM 15G (SODIUM POLYSTYRENE SULFONATE) [Concomitant]
     Indication: HYPERKALAEMIA
     Dosage: UNK
     Route: 065
     Dates: start: 20191209, end: 20191209
  23. OMEPRAZOLE. [Concomitant]
     Active Substance: OMEPRAZOLE
     Dosage: UNK
     Route: 065
     Dates: start: 20191219
  24. TRAMADOL. [Concomitant]
     Active Substance: TRAMADOL
     Indication: HIP FRACTURE
  25. CANDESARTAN CILEXETIL. [Concomitant]
     Active Substance: CANDESARTAN CILEXETIL
     Indication: HYPERTENSION
     Dosage: UNK
     Route: 065
     Dates: start: 20190906, end: 20200112

REACTIONS (1)
  - Decreased appetite [Recovered/Resolved]

NARRATIVE: CASE EVENT DATE: 20191218
